FAERS Safety Report 5810523-6 (Version None)
Quarter: 2008Q3

REPORT INFORMATION
  Report Type: 
  Country: None (occurrence: None)
  Receive Date: 20080715
  Receipt Date: 20080703
  Transmission Date: 20090109
  Serious: Yes (Other)
  Sender: FDA-Public Use
  Company Number: US-ELI_LILLY_AND_COMPANY-US200807001132

PATIENT
  Sex: Female

DRUGS (25)
  1. BYETTA [Suspect]
     Indication: TYPE 2 DIABETES MELLITUS
     Dosage: 5 UG, 2/D
     Route: 058
     Dates: start: 20070801, end: 20070901
  2. BYETTA [Suspect]
     Dosage: 10 UG, 2/D
     Route: 058
     Dates: start: 20070901, end: 20071001
  3. BYETTA [Suspect]
     Dosage: 5 UG, 2/D
     Route: 058
     Dates: start: 20071001
  4. METFORMIN [Concomitant]
     Indication: TYPE 2 DIABETES MELLITUS
     Dosage: 1500 MG, EACH EVENING
  5. AVAPRO [Concomitant]
     Dosage: 150 MG, DAILY (1/D)
  6. PREVACID [Concomitant]
     Dosage: 30 MG, DAILY (1/D)
  7. WELLBUTRIN [Concomitant]
     Dosage: 75 MG, DAILY (1/D)
  8. WELLBUTRIN [Concomitant]
     Dosage: 200 MG, DAILY (1/D)
     Dates: start: 20080601
  9. CYMBALTA [Concomitant]
     Dosage: 90 MG, EACH MORNING
  10. CYMBALTA [Concomitant]
     Dosage: 120 MG, EACH MORNING
     Dates: start: 20080601
  11. RITALIN [Concomitant]
     Dosage: 5 MG, 2/D
  12. ZYRTEC [Concomitant]
     Indication: HYPERSENSITIVITY
     Dosage: 10 MG, DAILY (1/D)
  13. OTHER NASAL PREPARATIONS [Concomitant]
     Dosage: 50 UG, 2/D
  14. ASPIRIN [Concomitant]
     Dosage: 81 MG, 4/W
  15. OXYTROL [Concomitant]
     Dosage: 3.9 MG, 2/W
     Route: 062
  16. LEVOTHYROXINE SODIUM [Concomitant]
     Dosage: 150 UG, UNK
  17. MAGNESIUM CITRATE [Concomitant]
     Dosage: 300 MG, EACH EVENING
  18. CALCIUM CITRATE [Concomitant]
     Dosage: 600 MG, 3/D
  19. PRAVASTATIN [Concomitant]
     Dosage: 80 MG, EACH EVENING
  20. AMBIEN [Concomitant]
     Dosage: 5 MG, EACH EVENING
  21. KETOCONAZOLE [Concomitant]
     Dosage: UNK, 2/W
  22. CAPEX [Concomitant]
     Dosage: UNK, 2/W
  23. LUXIQ [Concomitant]
  24. MULTI-VITAMINS [Concomitant]
     Dosage: UNK, DAILY (1/D)
  25. OLOPATADINE [Concomitant]
     Dosage: UNK, DAILY (1/D)

REACTIONS (4)
  - DEPRESSED LEVEL OF CONSCIOUSNESS [None]
  - DIZZINESS [None]
  - HYPOGLYCAEMIA [None]
  - NAUSEA [None]
